FAERS Safety Report 5916771-9 (Version None)
Quarter: 2008Q4

REPORT INFORMATION
  Report Type: 
  Country: None (occurrence: None)
  Receive Date: 20081009
  Receipt Date: 20080923
  Transmission Date: 20090506
  Serious: Yes (Hospitalization)
  Sender: FDA-Public Use
  Company Number: 002#1#2008-00050

PATIENT
  Age: 79 Year
  Sex: Male
  Weight: 93.441 kg

DRUGS (24)
  1. NEUPRO [Suspect]
     Indication: PARKINSON'S DISEASE
     Dosage: 6MG/24H, 1 IN 1 D, TRANSDERMAL, 2MG/24H, 1 IN 1 D, TRANSDERMAL, 4MG/24H, 1 IN 1 D, TRANSDERMAL
     Route: 062
     Dates: start: 20070913, end: 20070919
  2. NEUPRO [Suspect]
     Indication: PARKINSON'S DISEASE
     Dosage: 6MG/24H, 1 IN 1 D, TRANSDERMAL, 2MG/24H, 1 IN 1 D, TRANSDERMAL, 4MG/24H, 1 IN 1 D, TRANSDERMAL
     Route: 062
     Dates: start: 20070920, end: 20070928
  3. NEUPRO [Suspect]
     Indication: PARKINSON'S DISEASE
     Dosage: 6MG/24H, 1 IN 1 D, TRANSDERMAL, 2MG/24H, 1 IN 1 D, TRANSDERMAL, 4MG/24H, 1 IN 1 D, TRANSDERMAL
     Route: 062
     Dates: start: 20070929, end: 20080116
  4. NEUPRO [Suspect]
     Indication: PARKINSON'S DISEASE
     Dosage: 6MG/24H, 1 IN 1 D, TRANSDERMAL, 2MG/24H, 1 IN 1 D, TRANSDERMAL, 4MG/24H, 1 IN 1 D, TRANSDERMAL
     Route: 062
     Dates: start: 20070929, end: 20080116
  5. ZYVOX [Concomitant]
  6. REQUIP [Concomitant]
  7. SINEMET [Concomitant]
  8. CELEXA [Concomitant]
  9. CARDURA [Concomitant]
  10. COMTAN [Concomitant]
  11. SINEMENT CR [Concomitant]
  12. SEROQUEL [Concomitant]
  13. PREMARIN [Concomitant]
  14. FLONASE [Concomitant]
  15. TENORMIN [Concomitant]
  16. LASIX [Concomitant]
  17. ZANTAC [Concomitant]
  18. DULCOLAX [Concomitant]
  19. MIRALAX [Concomitant]
  20. SENNA [Concomitant]
  21. ASPIRIN [Concomitant]
  22. ES TYLENOL [Concomitant]
  23. OSCAL D [Concomitant]
  24. SORBITOL [Concomitant]

REACTIONS (9)
  - AGITATION [None]
  - CARDIAC PACEMAKER REPLACEMENT [None]
  - COMPULSIVE SEXUAL BEHAVIOUR [None]
  - CONFUSIONAL STATE [None]
  - GASTROINTESTINAL HAEMORRHAGE [None]
  - HALLUCINATION, VISUAL [None]
  - LETHARGY [None]
  - POSTOPERATIVE WOUND INFECTION [None]
  - SLEEP TERROR [None]
